FAERS Safety Report 18366503 (Version 2)
Quarter: 2020Q4

REPORT INFORMATION
  Report Type: Spontaneous
  Country: US (occurrence: US)
  Receive Date: 20201009
  Receipt Date: 20201119
  Transmission Date: 20210114
  Serious: Yes (Hospitalization)
  Sender: FDA-Public Use
  Company Number: US-BRISTOL-MYERS SQUIBB COMPANY-BMS-2020-079844

PATIENT
  Sex: Female
  Weight: 55.79 kg

DRUGS (4)
  1. REMODULIN [Suspect]
     Active Substance: TREPROSTINIL
     Indication: PULMONARY ARTERIAL HYPERTENSION
     Dosage: 0.005 MICROGRAM PER KILOGRAM
     Route: 058
     Dates: start: 20200911
  2. ADCIRCA [Concomitant]
     Active Substance: TADALAFIL
     Indication: PRODUCT USED FOR UNKNOWN INDICATION
     Dosage: UNK
     Route: 065
  3. WARFARIN SODIUM. [Suspect]
     Active Substance: WARFARIN SODIUM
     Indication: PRODUCT USED FOR UNKNOWN INDICATION
     Dosage: UNK
     Route: 065
  4. REMODULIN [Suspect]
     Active Substance: TREPROSTINIL
     Dosage: 0.012 MICROGRAM/KILOGRAM
     Route: 058
     Dates: start: 2020

REACTIONS (11)
  - Diarrhoea [Unknown]
  - Pain in jaw [Recovered/Resolved]
  - Headache [Recovered/Resolved]
  - Infusion site erythema [Unknown]
  - Arthralgia [Unknown]
  - Hospitalisation [Unknown]
  - Pain [Recovered/Resolved]
  - Infusion site pruritus [Unknown]
  - Nausea [Recovered/Resolved]
  - Infusion site haemorrhage [Unknown]
  - Device dislocation [Unknown]

NARRATIVE: CASE EVENT DATE: 2020
